FAERS Safety Report 5759410-2 (Version None)
Quarter: 2008Q2

REPORT INFORMATION
  Report Type: 
  Country: None (occurrence: None)
  Receive Date: 20080605
  Receipt Date: 20080227
  Transmission Date: 20081010
  Serious: Yes (Hospitalization, Other)
  Sender: FDA-Public Use
  Company Number: DE-BAYER-200812516GPV

PATIENT
  Age: 62 Year
  Sex: Female
  Weight: 69 kg

DRUGS (22)
  1. MABCAMPATH [Suspect]
     Indication: B-CELL SMALL LYMPHOCYTIC LYMPHOMA
     Route: 058
     Dates: start: 20060918, end: 20060919
  2. MABCAMPATH [Suspect]
     Route: 058
     Dates: start: 20060724, end: 20060726
  3. MABCAMPATH [Suspect]
     Route: 058
     Dates: start: 20061016, end: 20061017
  4. MABCAMPATH [Suspect]
     Route: 058
     Dates: start: 20061121, end: 20061122
  5. MABCAMPATH [Suspect]
     Route: 058
     Dates: start: 20060719, end: 20060720
  6. MABCAMPATH [Suspect]
     Route: 058
     Dates: start: 20060721, end: 20060721
  7. FLUDARA [Suspect]
     Indication: B-CELL SMALL LYMPHOCYTIC LYMPHOMA
     Route: 042
     Dates: start: 20060721, end: 20060721
  8. FLUDARA [Suspect]
     Route: 042
     Dates: start: 20060919, end: 20060919
  9. FLUDARA [Suspect]
     Route: 042
     Dates: start: 20061122, end: 20061122
  10. FLUDARA [Suspect]
     Route: 042
     Dates: start: 20061121, end: 20061121
  11. FLUDARA [Suspect]
     Route: 042
     Dates: start: 20060918, end: 20060918
  12. FLUDARA [Suspect]
     Route: 042
     Dates: start: 20060719, end: 20060720
  13. FLUDARA [Suspect]
     Route: 042
     Dates: start: 20061016, end: 20061016
  14. FLUDARA [Suspect]
     Route: 042
     Dates: start: 20061017, end: 20061017
  15. CYCLOPHOSPHAMIDE [Suspect]
     Indication: B-CELL SMALL LYMPHOCYTIC LYMPHOMA
     Route: 042
     Dates: start: 20061016, end: 20061017
  16. CYCLOPHOSPHAMIDE [Suspect]
     Route: 042
     Dates: start: 20060719, end: 20060720
  17. CYCLOPHOSPHAMIDE [Suspect]
     Route: 042
     Dates: start: 20061121, end: 20061122
  18. CYCLOPHOSPHAMIDE [Suspect]
     Route: 042
     Dates: start: 20060918, end: 20060919
  19. CYCLOPHOSPHAMIDE [Suspect]
     Route: 042
     Dates: start: 20060721, end: 20060721
  20. TAVEGIL [Concomitant]
     Indication: PROPHYLAXIS
     Dosage: AS USED: 2 MG
     Route: 042
  21. SOLUDECORTIN [Concomitant]
     Indication: PROPHYLAXIS
     Dosage: AS USED: 100 MG
     Route: 042
  22. ACETAMINOPHEN [Concomitant]
     Indication: PROPHYLAXIS
     Dosage: AS USED: 100 MG
     Route: 048

REACTIONS (13)
  - ANAEMIA HAEMOLYTIC AUTOIMMUNE [None]
  - APHTHOUS STOMATITIS [None]
  - CHOLESTASIS [None]
  - CYTOMEGALOVIRUS HEPATITIS [None]
  - CYTOMEGALOVIRUS INFECTION [None]
  - GENERAL PHYSICAL HEALTH DETERIORATION [None]
  - IMMUNODEFICIENCY [None]
  - LEUKOPENIA [None]
  - OEDEMA PERIPHERAL [None]
  - PAIN [None]
  - PNEUMONIA PRIMARY ATYPICAL [None]
  - RELAPSING FEVER [None]
  - SWELLING FACE [None]
